FAERS Safety Report 22256228 (Version 1)
Quarter: 2023Q2

REPORT INFORMATION
  Report Type: Report from Study
  Country: US (occurrence: US)
  Receive Date: 20230426
  Receipt Date: 20230426
  Transmission Date: 20230722
  Serious: Yes (Other)
  Sender: FDA-Public Use
  Company Number: US-GILEAD-2023-0625423

PATIENT
  Sex: Male

DRUGS (10)
  1. AZTREONAM LYSINE [Suspect]
     Active Substance: AZTREONAM LYSINE
     Indication: Product used for unknown indication
     Dosage: 75MG|RECONSTITUTE CAYSTON WITH SUPPLIED DILUENT AND NEBULIZE 75 MG VIA ALTERA THREE TIMES A DAY EVER
     Route: 055
  2. ALBUTEROL SULFATE [Concomitant]
     Active Substance: ALBUTEROL SULFATE
  3. CARAFATE [Concomitant]
     Active Substance: SUCRALFATE
  4. SODIUM CHLORIDE [Concomitant]
     Active Substance: SODIUM CHLORIDE
  5. CETIRIZINE HYDROCHLORIDE [Concomitant]
     Active Substance: CETIRIZINE HYDROCHLORIDE
  6. NEXIUM [Concomitant]
     Active Substance: ESOMEPRAZOLE MAGNESIUM
  7. FLONASE [Concomitant]
     Active Substance: FLUTICASONE PROPIONATE
  8. TYLENOL COLD MULTI-SYMPTOM NIGHTTIM. [Concomitant]
  9. KEPPRA [Concomitant]
     Active Substance: LEVETIRACETAM
  10. FLOVENT [Concomitant]
     Active Substance: FLUTICASONE PROPIONATE

REACTIONS (1)
  - Ulcer haemorrhage [Unknown]
